FAERS Safety Report 10969721 (Version 2)
Quarter: 2015Q2

REPORT INFORMATION
  Report Type: Report from Study
  Country: FR (occurrence: FR)
  Receive Date: 20150331
  Receipt Date: 20150427
  Transmission Date: 20150821
  Serious: Yes (Other)
  Sender: FDA-Public Use
  Company Number: FR-JNJFOC-20150316246

PATIENT
  Age: 82 Year
  Sex: Male

DRUGS (9)
  1. AMIODARONE [Concomitant]
     Active Substance: AMIODARONE
     Route: 065
     Dates: start: 20070830
  2. SEROPLEX [Concomitant]
     Active Substance: ESCITALOPRAM OXALATE
     Route: 065
     Dates: start: 20101014
  3. XARELTO [Suspect]
     Active Substance: RIVAROXABAN
     Indication: CEREBROVASCULAR ACCIDENT PROPHYLAXIS
     Route: 048
     Dates: start: 20130425
  4. TENORETIC [Concomitant]
     Active Substance: ATENOLOL\CHLORTHALIDONE
     Route: 065
     Dates: start: 20060726, end: 20130719
  5. SEVIKAR [Concomitant]
     Active Substance: AMLODIPINE BESYLATE\OLMESARTAN MEDOXOMIL
     Route: 065
     Dates: start: 20110626
  6. TENORMIN [Concomitant]
     Active Substance: ATENOLOL
     Route: 065
     Dates: start: 20130720
  7. TAHOR [Concomitant]
     Active Substance: ATORVASTATIN CALCIUM
     Route: 065
     Dates: start: 20020616
  8. XARELTO [Suspect]
     Active Substance: RIVAROXABAN
     Indication: ATRIAL FIBRILLATION
     Route: 048
     Dates: start: 20130425
  9. KALEORID [Concomitant]
     Active Substance: POTASSIUM CHLORIDE
     Route: 065
     Dates: start: 20130720, end: 20130727

REACTIONS (1)
  - Renal impairment [Unknown]

NARRATIVE: CASE EVENT DATE: 20130716
